FAERS Safety Report 5887947-4 (Version None)
Quarter: 2008Q3

REPORT INFORMATION
  Report Type: 
  Country: None (occurrence: None)
  Receive Date: 20080918
  Receipt Date: 20080911
  Transmission Date: 20090109
  Serious: Yes (Life-Threatening)
  Sender: FDA-Public Use
  Company Number: A0748220A

PATIENT
  Age: 79 Year
  Sex: Female

DRUGS (1)
  1. WELLBUTRIN [Suspect]
     Indication: MAJOR DEPRESSION
     Dosage: 75MG PER DAY
     Dates: start: 20080821, end: 20080903

REACTIONS (1)
  - DERMATITIS ALLERGIC [None]
